FAERS Safety Report 24595908 (Version 1)
Quarter: 2024Q4

REPORT INFORMATION
  Report Type: Spontaneous
  Country: ES (occurrence: ES)
  Receive Date: 20241109
  Receipt Date: 20241109
  Transmission Date: 20250114
  Serious: Yes (Other)
  Sender: TEVA
  Company Number: None

PATIENT
  Age: 23 Year
  Sex: Male
  Weight: 78 kg

DRUGS (1)
  1. FINASTERIDE [Suspect]
     Active Substance: FINASTERIDE
     Indication: Androgenetic alopecia
     Dosage: 1.25 MG ORALLY, USING THE 5 MG TABLET. FINASTERIDE (2624A)
     Route: 048
     Dates: start: 20220314, end: 20220614

REACTIONS (6)
  - Gynaecomastia [Not Recovered/Not Resolved]
  - Dry mouth [Not Recovered/Not Resolved]
  - Bone pain [Not Recovered/Not Resolved]
  - Suicidal ideation [Not Recovered/Not Resolved]
  - Erectile dysfunction [Not Recovered/Not Resolved]
  - Osteoporosis [Not Recovered/Not Resolved]

NARRATIVE: CASE EVENT DATE: 20220406
